FAERS Safety Report 17214609 (Version 1)
Quarter: 2020Q1

REPORT INFORMATION
  Report Type: Spontaneous
  Country: US (occurrence: US)
  Receive Date: 20191228
  Receipt Date: 20191228
  Transmission Date: 20200409
  Serious: Yes (Hospitalization, Disabling)
  Sender: FDA-Public Use
  Company Number: None

PATIENT
  Age: 38 Year
  Sex: Male
  Weight: 115.2 kg

DRUGS (1)
  1. FINESTERIDE [Suspect]
     Active Substance: FINASTERIDE
     Indication: ANDROGENETIC ALOPECIA
     Dosage: ?          QUANTITY:1 TABLET(S);?
     Route: 048

REACTIONS (9)
  - Seborrhoea [None]
  - Hyperhidrosis [None]
  - Fatigue [None]
  - Loss of libido [None]
  - Anxiety [None]
  - Insomnia [None]
  - Constipation [None]
  - Blood testosterone decreased [None]
  - Testicular pain [None]

NARRATIVE: CASE EVENT DATE: 20050414
